FAERS Safety Report 9010049 (Version 3)
Quarter: 2013Q1

REPORT INFORMATION
  Report Type: Report from Study
  Country: JP (occurrence: JP)
  Receive Date: 20130110
  Receipt Date: 20130125
  Transmission Date: 20140127
  Serious: Yes (Other)
  Sender: FDA-Public Use
  Company Number: JP-UCBSA-074474

PATIENT
  Age: 79 Year
  Sex: Male
  Weight: 60 kg

DRUGS (4)
  1. E KEPPRA [Suspect]
     Indication: COMPLEX PARTIAL SEIZURES
     Route: 048
     Dates: start: 20120810, end: 20121020
  2. E KEPPRA [Suspect]
     Indication: PARTIAL SEIZURES WITH SECONDARY GENERALISATION
     Route: 048
     Dates: start: 20120810, end: 20121020
  3. LOXONIN [Concomitant]
     Indication: ANALGESIC THERAPY
     Dosage: DAILY DOSE: 180 MG
     Route: 048
     Dates: start: 20120905
  4. SELBEX [Concomitant]
     Indication: PROPHYLAXIS AGAINST GASTROINTESTINAL ULCER
     Dosage: DAIL DOSE: 150 MG
     Route: 048
     Dates: start: 20120905

REACTIONS (1)
  - Pelvic fracture [Unknown]
